FAERS Safety Report 11554179 (Version 2)
Quarter: 2015Q4

REPORT INFORMATION
  Report Type: Spontaneous
  Country: FR (occurrence: FR)
  Receive Date: 20150925
  Receipt Date: 20151001
  Transmission Date: 20160304
  Serious: Yes (Hospitalization)
  Sender: FDA-Public Use
  Company Number: FR-PFIZER INC-2015299644

PATIENT
  Age: 5 Year
  Sex: Female

DRUGS (2)
  1. GENOTONORM [Suspect]
     Active Substance: SOMATROPIN
     Indication: GROWTH HORMONE DEFICIENCY
  2. GENOTONORM [Suspect]
     Active Substance: SOMATROPIN
     Indication: PRADER-WILLI SYNDROME
     Dosage: UNK
     Dates: start: 201011

REACTIONS (2)
  - Sleep apnoea syndrome [Unknown]
  - Condition aggravated [Unknown]
